FAERS Safety Report 18809872 (Version 1)
Quarter: 2021Q1

REPORT INFORMATION
  Report Type: Other
  Country: US (occurrence: US)
  Receive Date: 20210129
  Receipt Date: 20210129
  Transmission Date: 20210419
  Serious: Yes (Other)
  Sender: FDA-Public Use
  Company Number: US-ROCHE-2757551

PATIENT
  Sex: Female

DRUGS (1)
  1. OCREVUS [Suspect]
     Active Substance: OCRELIZUMAB
     Indication: RELAPSING-REMITTING MULTIPLE SCLEROSIS
     Dosage: 300 MG ONCE IN 2 WEEKS, THEN 600 MG ONCE IN 6 MONTHS.?ON 13/JUL/2020, RECEIVED OCRELIZUMAB OF AN UNK
     Route: 042
     Dates: start: 20200629

REACTIONS (1)
  - Urinary tract infection [Not Recovered/Not Resolved]
